FAERS Safety Report 7546439-7 (Version None)
Quarter: 2011Q2

REPORT INFORMATION
  Report Type: 
  Country: None (occurrence: None)
  Receive Date: 20110607
  Receipt Date: 20110523
  Transmission Date: 20111010
  Serious: Yes (Life-Threatening, Hospitalization, Other)
  Sender: FDA-Public Use
  Company Number: 2011MA006232

PATIENT
  Age: 27 Year
  Sex: Female
  Weight: 78 kg

DRUGS (4)
  1. LACOSAMIDE [Concomitant]
  2. TOPIRAMATE [Concomitant]
  3. GABAPENTIN [Suspect]
     Indication: SUICIDE ATTEMPT
     Dosage: 56 G, 1X, PO
     Route: 048
     Dates: start: 20060401, end: 20060401
  4. ZONISAMIDE [Concomitant]

REACTIONS (17)
  - SUICIDE ATTEMPT [None]
  - MULTIPLE DRUG OVERDOSE [None]
  - ENCEPHALOPATHY [None]
  - PERSONALITY DISORDER [None]
  - PROCEDURAL COMPLICATION [None]
  - BLOOD PRESSURE DECREASED [None]
  - ACIDOSIS [None]
  - BLOOD POTASSIUM DECREASED [None]
  - AREFLEXIA [None]
  - ELECTROCARDIOGRAM PR PROLONGATION [None]
  - COMA [None]
  - VOMITING [None]
  - PNEUMONIA [None]
  - GRAND MAL CONVULSION [None]
  - ASPIRATION [None]
  - WHITE BLOOD CELL COUNT INCREASED [None]
  - SUICIDAL IDEATION [None]
